FAERS Safety Report 17445196 (Version 1)
Quarter: 2020Q1

REPORT INFORMATION
  Report Type: Spontaneous
  Country: US (occurrence: US)
  Receive Date: 20200221
  Receipt Date: 20200221
  Transmission Date: 20200409
  Serious: No
  Sender: FDA-Public Use
  Company Number: US-PFIZER INC-2020076347

PATIENT
  Age: 60 Year
  Sex: Female

DRUGS (1)
  1. NEURONTIN [Suspect]
     Active Substance: GABAPENTIN
     Indication: COMPLEX REGIONAL PAIN SYNDROME
     Dosage: 600 MG, 3X/DAY
     Route: 048

REACTIONS (6)
  - Product use in unapproved indication [Unknown]
  - Off label use [Unknown]
  - Abdominal discomfort [Unknown]
  - Dry eye [Unknown]
  - Movement disorder [Unknown]
  - Dry mouth [Unknown]
